FAERS Safety Report 6730635-2 (Version None)
Quarter: 2010Q2

REPORT INFORMATION
  Report Type: 
  Country: None (occurrence: None)
  Receive Date: 20100518
  Receipt Date: 20100505
  Transmission Date: 20101027
  Serious: Yes (Hospitalization, Other)
  Sender: FDA-Public Use
  Company Number: US-ELI_LILLY_AND_COMPANY-US201005002632

PATIENT
  Sex: Male

DRUGS (1)
  1. CIALIS [Suspect]
     Dates: start: 20080101

REACTIONS (2)
  - DIALYSIS [None]
  - RENAL TRANSPLANT [None]
